FAERS Safety Report 18478171 (Version 3)
Quarter: 2021Q1

REPORT INFORMATION
  Report Type: Spontaneous
  Country: BR (occurrence: BR)
  Receive Date: 20201108
  Receipt Date: 20210315
  Transmission Date: 20210419
  Serious: No
  Sender: FDA-Public Use
  Company Number: BR-TOLMAR, INC.-20BR023640

PATIENT

DRUGS (1)
  1. ELIGARD [Suspect]
     Active Substance: LEUPROLIDE ACETATE
     Indication: PRODUCT USED FOR UNKNOWN INDICATION
     Dosage: 22.5 MG
     Route: 065

REACTIONS (4)
  - Device leakage [Unknown]
  - Wrong technique in product usage process [Unknown]
  - Product preparation error [Unknown]
  - Syringe issue [Unknown]
